FAERS Safety Report 21057522 (Version 1)
Quarter: 2022Q3

REPORT INFORMATION
  Report Type: Spontaneous
  Country: US (occurrence: None)
  Receive Date: 20220708
  Receipt Date: 20220708
  Transmission Date: 20221027
  Serious: Yes (Other)
  Sender: FDA-Public Use
  Company Number: None

PATIENT
  Age: 70 Year
  Sex: Female
  Weight: 93.1 kg

DRUGS (1)
  1. FERAHEME [Suspect]
     Active Substance: FERUMOXYTOL NON-STOICHIOMETRIC MAGNETITE
     Indication: Iron deficiency anaemia
     Dosage: FREQUENCY : AS NEEDED;?
     Route: 042
     Dates: start: 20220624, end: 20220624

REACTIONS (8)
  - Dizziness [None]
  - Nausea [None]
  - Retching [None]
  - Chest pain [None]
  - Palpitations [None]
  - Flushing [None]
  - Blood pressure increased [None]
  - Infusion related reaction [None]

NARRATIVE: CASE EVENT DATE: 20220624
